FAERS Safety Report 13401845 (Version 3)
Quarter: 2017Q2

REPORT INFORMATION
  Report Type: Spontaneous
  Country: JP (occurrence: JP)
  Receive Date: 20170404
  Receipt Date: 20170512
  Transmission Date: 20170830
  Serious: Yes (Death, Hospitalization, Other)
  Sender: FDA-Public Use
  Company Number: JP-BRISTOL-MYERS SQUIBB COMPANY-BMS-2017-028213

PATIENT
  Age: 44 Year
  Sex: Male

DRUGS (1)
  1. OPDIVO [Suspect]
     Active Substance: NIVOLUMAB
     Indication: NON-SMALL CELL LUNG CANCER RECURRENT
     Dosage: UNK
     Route: 041
     Dates: start: 20170314

REACTIONS (4)
  - Pleural fistula [Unknown]
  - Infectious pleural effusion [Unknown]
  - Cerebrovascular accident [Fatal]
  - Thoracic cavity drainage [Unknown]

NARRATIVE: CASE EVENT DATE: 20170326
